FAERS Safety Report 9471886 (Version 2)
Quarter: 2013Q3

REPORT INFORMATION
  Report Type: Spontaneous
  Country: US (occurrence: US)
  Receive Date: 20130823
  Receipt Date: 20130910
  Transmission Date: 20140515
  Serious: Yes (Hospitalization, Other)
  Sender: FDA-Public Use
  Company Number: US-AMGEN-USASP2013057768

PATIENT
  Age: 96 Year
  Sex: Male
  Weight: 72.56 kg

DRUGS (6)
  1. PROCRIT [Suspect]
     Indication: PRODUCT USED FOR UNKNOWN INDICATION
     Dosage: 20000 UNIT/ML, Q2WK
     Route: 065
     Dates: start: 200304
  2. METOPROLOL SUCCINATE [Concomitant]
     Indication: HYPERTENSION
     Dosage: 25 MG, QD AM
     Route: 048
     Dates: start: 2002
  3. COZAAR [Concomitant]
     Indication: CARDIAC DISORDER
     Dosage: 50 MG, DAILY IN THE AM
     Route: 048
     Dates: start: 2002
  4. COZAAR [Concomitant]
     Indication: BLOOD PRESSURE
     Dosage: 25 MG, DAILY AT NIGHT
     Route: 048
  5. LIPITOR [Concomitant]
     Indication: BLOOD CHOLESTEROL INCREASED
     Dosage: 10 MG, AM UNK
     Dates: start: 2002
  6. HUMALOG [Concomitant]
     Indication: DIABETES MELLITUS
     Dosage: 28 UNIT, MORNING  10 NIGHT

REACTIONS (6)
  - Hip fracture [Unknown]
  - Haemoglobin decreased [Recovered/Resolved]
  - Haemoglobin increased [Recovered/Resolved]
  - Adverse event [Unknown]
  - Skin ulcer [Unknown]
  - Fall [Recovered/Resolved]
